FAERS Safety Report 6197158-3 (Version None)
Quarter: 2009Q2

REPORT INFORMATION
  Report Type: 
  Country: None (occurrence: None)
  Receive Date: 20090520
  Receipt Date: 20090515
  Transmission Date: 20091009
  Serious: Yes (Other)
  Sender: FDA-Public Use
  Company Number: DE-GENENTECH-283226

PATIENT
  Sex: Male

DRUGS (3)
  1. RAPTIVA [Suspect]
     Indication: PSORIASIS
     Dosage: 1.1 ML, 1/WEEK
     Route: 058
     Dates: start: 20060607, end: 20070716
  2. VOLTAREN [Concomitant]
     Indication: DRUG USE FOR UNKNOWN INDICATION
     Dosage: UNK
  3. ANGIOTENSIN I RECEPTOR BLOCKER (UNK INGREDIE [Concomitant]
     Indication: DRUG USE FOR UNKNOWN INDICATION
     Dosage: UNK

REACTIONS (5)
  - ARTHRALGIA [None]
  - DEPRESSION [None]
  - MUSCLE STRAIN [None]
  - MYALGIA [None]
  - MYOPATHY [None]
